FAERS Safety Report 8048777-0 (Version None)
Quarter: 2012Q1

REPORT INFORMATION
  Report Type: 
  Country: None (occurrence: None)
  Receive Date: 20120117
  Receipt Date: 20120109
  Transmission Date: 20120608
  Serious: Yes (Other)
  Sender: FDA-Public Use
  Company Number: US-UCBSA-049413

PATIENT
  Age: 33 Year
  Sex: Female

DRUGS (3)
  1. KEPPRA [Suspect]
     Dosage: 1250
     Dates: start: 20060613, end: 20060826
  2. FOLIC ACID [Concomitant]
  3. KEPPRA [Suspect]
     Indication: EPILEPSY
     Dosage: 1000
     Dates: end: 20060613

REACTIONS (4)
  - BREECH DELIVERY [None]
  - CAESAREAN SECTION [None]
  - PREMATURE DELIVERY [None]
  - PREGNANCY [None]
